FAERS Safety Report 7014303-8 (Version None)
Quarter: 2010Q3

REPORT INFORMATION
  Report Type: 
  Country: None (occurrence: None)
  Receive Date: 20100927
  Receipt Date: 20100921
  Transmission Date: 20110219
  Serious: Yes (Hospitalization)
  Sender: FDA-Public Use
  Company Number: BR-BAYER-201019182LA

PATIENT
  Age: 65 Year
  Sex: Female

DRUGS (2)
  1. BETAFERON [Suspect]
     Indication: MULTIPLE SCLEROSIS
     Dosage: BETAJECT
     Dates: start: 19971001, end: 20100401
  2. DICLOFENAC SODIUM [Concomitant]
     Indication: SPINAL OSTEOARTHRITIS
     Route: 048
     Dates: start: 20000101

REACTIONS (8)
  - BALANCE DISORDER [None]
  - BLOOD PRESSURE INCREASED [None]
  - FALL [None]
  - FEELING COLD [None]
  - FEELING JITTERY [None]
  - PAIN [None]
  - PYREXIA [None]
  - WRIST FRACTURE [None]
